FAERS Safety Report 9038575 (Version 2)
Quarter: 2019Q3

REPORT INFORMATION
  Report Type: Spontaneous
  Country: DE (occurrence: DE)
  Receive Date: 20130129
  Receipt Date: 20190708
  Transmission Date: 20191005
  Serious: Yes (Hospitalization)
  Sender: FDA-Public Use
  Company Number: DE-MYLANLABS-2013S1001277

PATIENT
  Age: 34 Year
  Sex: Male

DRUGS (10)
  1. PREGABALIN. [Interacting]
     Active Substance: PREGABALIN
     Dosage: 300 MILLIGRAM, QD
     Route: 048
  2. PREGABALIN. [Interacting]
     Active Substance: PREGABALIN
     Indication: ANXIETY
     Dosage: 150 MG,BID
     Route: 065
  3. LORAZEPAM. [Concomitant]
     Active Substance: LORAZEPAM
     Indication: PSYCHOTIC DISORDER
     Dosage: UP TO 2 MG/DAY FOR 1 WEEK
     Route: 065
  4. PREGABALIN. [Interacting]
     Active Substance: PREGABALIN
     Dosage: 150 MILLIGRAM, QD
     Route: 065
  5. PREGABALIN. [Interacting]
     Active Substance: PREGABALIN
     Dosage: 300 MG, 2X/DAY
     Route: 048
  6. METOPROLOL SUCCINATE. [Concomitant]
     Active Substance: METOPROLOL SUCCINATE
     Indication: HYPERTENSION
     Dosage: 47.5 MILLIGRAM, QD
     Route: 065
  7. CLOZAPINE. [Suspect]
     Active Substance: CLOZAPINE
     Indication: SCHIZOPHRENIA
     Dosage: 200 MG,QID
     Route: 065
  8. PREGABALIN. [Interacting]
     Active Substance: PREGABALIN
     Dosage: 300 MILLIGRAM, BID
     Route: 048
  9. PREGABALIN. [Interacting]
     Active Substance: PREGABALIN
     Dosage: 200 MILLIGRAM, Q6H
     Route: 065
  10. LORAZEPAM. [Concomitant]
     Active Substance: LORAZEPAM
     Indication: ANXIETY

REACTIONS (3)
  - Anxiety [Unknown]
  - Drug interaction [Recovered/Resolved]
  - Antipsychotic drug level increased [Unknown]
